FAERS Safety Report 4677111-9 (Version None)
Quarter: 2005Q2

REPORT INFORMATION
  Report Type: 
  Country: None (occurrence: None)
  Receive Date: 20050525
  Receipt Date: 20050525
  Transmission Date: 20051028
  Serious: Yes (Life-Threatening, Hospitalization)
  Sender: FDA-Public Use
  Company Number: None

PATIENT
  Age: 47 Year
  Sex: Female
  Weight: 48.5 kg

DRUGS (8)
  1. ABILIFY [Suspect]
     Indication: SCHIZOPHRENIA, PARANOID TYPE
     Dosage: 15MG  QD  ORAL
     Route: 048
     Dates: start: 20050202, end: 20050209
  2. KALETRA [Concomitant]
  3. VIREAD [Concomitant]
  4. LEXAPRO [Concomitant]
  5. ABILIFY [Concomitant]
  6. ZITHROMAX [Concomitant]
  7. LOPRESSOR [Concomitant]
  8. DILANTIN [Concomitant]

REACTIONS (21)
  - ALANINE AMINOTRANSFERASE INCREASED [None]
  - ASPARTATE AMINOTRANSFERASE INCREASED [None]
  - BLOOD GLUCOSE DECREASED [None]
  - BLOOD PHOSPHORUS INCREASED [None]
  - BODY TEMPERATURE INCREASED [None]
  - CONFUSIONAL STATE [None]
  - CONVULSION [None]
  - COORDINATION ABNORMAL [None]
  - DRUG INTERACTION [None]
  - DYSARTHRIA [None]
  - DYSPNOEA [None]
  - GRAND MAL CONVULSION [None]
  - HYPERKALAEMIA [None]
  - INFECTION [None]
  - LIVER FUNCTION TEST ABNORMAL [None]
  - MENTAL STATUS CHANGES [None]
  - NEUROLEPTIC MALIGNANT SYNDROME [None]
  - RENAL FAILURE ACUTE [None]
  - TACHYCARDIA [None]
  - TREMOR [None]
  - UNRESPONSIVE TO VERBAL STIMULI [None]
